FAERS Safety Report 5838112-8 (Version None)
Quarter: 2008Q3

REPORT INFORMATION
  Report Type: 
  Country: None (occurrence: None)
  Receive Date: 20080808
  Receipt Date: 20080724
  Transmission Date: 20090109
  Serious: Yes (Death)
  Sender: FDA-Public Use
  Company Number: PHHY2008MX15271

PATIENT
  Age: 78 Year
  Sex: Female

DRUGS (1)
  1. CARBIDOPA,ENTACAPONE,LEVODOPA [Suspect]
     Indication: PARKINSON'S DISEASE
     Dosage: 2 TABLETS, 150/37.5/200 MG PER DAY
     Route: 048
     Dates: start: 20040701

REACTIONS (1)
  - DIABETIC COMA [None]
